FAERS Safety Report 21634176 (Version 1)
Quarter: 2022Q4

REPORT INFORMATION
  Report Type: Spontaneous
  Country: AT (occurrence: AT)
  Receive Date: 20221123
  Receipt Date: 20221123
  Transmission Date: 20230112
  Serious: Yes (Other)
  Sender: FDA-Public Use
  Company Number: None

PATIENT
  Age: 56 Year
  Sex: Male

DRUGS (9)
  1. PAXLOVID [Suspect]
     Active Substance: NIRMATRELVIR\RITONAVIR
     Indication: COVID-19
     Dosage: UNK
     Dates: start: 20221026, end: 20221030
  2. BISOPROLOL FUMARATE [Concomitant]
     Active Substance: BISOPROLOL FUMARATE
     Indication: Hypertension
     Dosage: 5 MG, 1X/DAY(0/0/1)
  3. BISOPROLOL FUMARATE [Concomitant]
     Active Substance: BISOPROLOL FUMARATE
     Dosage: 10 MG, 1X/DAY(1/0/0)
  4. DIOVAN [Concomitant]
     Active Substance: VALSARTAN
     Indication: Hypertension
     Dosage: 80 MG, 2X/DAY(160MG, 1/0/1)
  5. ESOMEPRAZOLE [Concomitant]
     Active Substance: ESOMEPRAZOLE
     Indication: Chronic gastritis
     Dosage: 40 MG, 1X/DAY, (0/0/1 )
  6. DEPAKINE CRONO [VALPROATE SODIUM;VALPROIC ACID] [Concomitant]
     Indication: Post-traumatic stress disorder
     Dosage: 500 MG, 1X/DAY(1/0/0 )
  7. VENLAFAXINE HYDROCHLORIDE [Concomitant]
     Active Substance: VENLAFAXINE HYDROCHLORIDE
     Indication: Post-traumatic stress disorder
     Dosage: 150 MG, 1X/DAY (1/0/0)
  8. SYNJARDY [Concomitant]
     Active Substance: EMPAGLIFLOZIN\METFORMIN HYDROCHLORIDE
     Indication: Diabetes mellitus
     Dosage: 2 DF, 1X/DAY (12.5 MG/1000 MG FILM-COATED TABLETS)
  9. LEVOCETIRIZINE DIHYDROCHLORIDE [Concomitant]
     Active Substance: LEVOCETIRIZINE DIHYDROCHLORIDE
     Indication: Mast cell activation syndrome
     Dosage: 5 MG, 1X/DAY, (0/1/0)

REACTIONS (7)
  - Palpitations [Recovered/Resolved]
  - Blood glucose increased [Recovered/Resolved]
  - Rash [Not Recovered/Not Resolved]
  - Blood pressure abnormal [Recovered/Resolved]
  - Taste disorder [Recovering/Resolving]
  - Dysgeusia [Recovering/Resolving]
  - Pulse abnormal [Recovered/Resolved]

NARRATIVE: CASE EVENT DATE: 20221026
